FAERS Safety Report 14153157 (Version 2)
Quarter: 2018Q1

REPORT INFORMATION
  Report Type: Spontaneous
  Country: US (occurrence: US)
  Receive Date: 20171102
  Receipt Date: 20180206
  Transmission Date: 20180508
  Serious: Yes (Other)
  Sender: FDA-Public Use
  Company Number: US-BAYER-2017-208581

PATIENT
  Age: 28 Year
  Sex: Female

DRUGS (1)
  1. KYLEENA [Suspect]
     Active Substance: LEVONORGESTREL
     Indication: CONTRACEPTION
     Dosage: 17.5 MCG/24HR, CONT
     Route: 015
     Dates: start: 20170915

REACTIONS (3)
  - Cervical dysplasia [None]
  - Cervicitis human papilloma virus [None]
  - Genital haemorrhage [Recovered/Resolved]

NARRATIVE: CASE EVENT DATE: 20171019
